FAERS Safety Report 6285856-2 (Version None)
Quarter: 2009Q3

REPORT INFORMATION
  Report Type: 
  Country: None (occurrence: None)
  Receive Date: 20090724
  Receipt Date: 20090624
  Transmission Date: 20100115
  Serious: Yes (Death, Hospitalization, Other)
  Sender: FDA-Public Use
  Company Number: WAES 0906CHN00043

PATIENT
  Age: 61 Year
  Sex: Male

DRUGS (6)
  1. TAB PLACEBO (UNSPECIFIED) [Suspect]
     Indication: HIGH DENSITY LIPOPROTEIN DECREASED
     Dosage: PO
     Route: 048
     Dates: start: 20080130, end: 20090330
  2. ZOCOR [Suspect]
     Indication: LOW DENSITY LIPOPROTEIN DECREASED
     Dosage: 40 MG/DAILY PO
     Route: 048
     Dates: start: 20071012, end: 20071115
  3. VYTORIN [Suspect]
     Indication: LOW DENSITY LIPOPROTEIN DECREASED
     Dosage: 10-40 MG/DAILY PO
     Route: 048
     Dates: start: 20071116, end: 20090330
  4. TAB LAROPIPRANT (+) NIACIN [Suspect]
     Indication: HIGH DENSITY LIPOPROTEIN DECREASED
     Dosage: PO
     Route: 048
     Dates: start: 20071214, end: 20080129
  5. ASPIRIN [Concomitant]
  6. ISOSORBIDE MONONITRATE [Concomitant]

REACTIONS (13)
  - ALANINE AMINOTRANSFERASE INCREASED [None]
  - BLOOD ALKALINE PHOSPHATASE INCREASED [None]
  - BLOOD BILIRUBIN INCREASED [None]
  - BLOOD CREATINE PHOSPHOKINASE MB INCREASED [None]
  - CARDIAC FAILURE CONGESTIVE [None]
  - DIABETES MELLITUS [None]
  - ELECTROCARDIOGRAM ST SEGMENT DEPRESSION [None]
  - ELECTROCARDIOGRAM T WAVE INVERSION [None]
  - HYPOXIA [None]
  - LIVER INJURY [None]
  - MYOCARDIAL INFARCTION [None]
  - MYOPATHY [None]
  - PNEUMONIA [None]
